FAERS Safety Report 8841966 (Version 2)
Quarter: 2012Q4

REPORT INFORMATION
  Report Type: 
  Country: JP (occurrence: JP)
  Receive Date: 20121016
  Receipt Date: 20121227
  Transmission Date: 20130627
  Serious: Yes (Other)
  Sender: FDA-Public Use
  Company Number: PHHY2012JP090842

PATIENT

DRUGS (4)
  1. MYCOPHENOLATE MOFETIL [Suspect]
     Indication: IMMUNOSUPPRESSION
     Dosage: 1000 mg, QD
     Route: 048
  2. MYCOPHENOLATE MOFETIL [Suspect]
     Dosage: 2000 mg, QD
     Route: 048
  3. NEORAL [Concomitant]
     Indication: IMMUNOSUPPRESSION
     Dosage: 120 mg, QD
     Route: 048
  4. PREDNISOLONE [Concomitant]
     Route: 048

REACTIONS (8)
  - Hydronephrosis [Recovered/Resolved]
  - Adenovirus infection [Recovered/Resolved]
  - Renal impairment [Recovered/Resolved]
  - Renal disorder [Recovered/Resolved]
  - Haematuria [Recovered/Resolved]
  - Vomiting [Recovered/Resolved]
  - Pyrexia [Recovered/Resolved]
  - Malaise [Recovered/Resolved]
